FAERS Safety Report 8310672-7 (Version None)
Quarter: 2012Q2

REPORT INFORMATION
  Report Type: 
  Country: None (occurrence: None)
  Receive Date: 20120425
  Receipt Date: 20120413
  Transmission Date: 20120825
  Serious: Yes (Death, Hospitalization)
  Sender: FDA-Public Use
  Company Number: GB-ROCHE-1060194

PATIENT
  Sex: Female

DRUGS (1)
  1. LUCENTIS [Suspect]
     Indication: AGE-RELATED MACULAR DEGENERATION
     Dosage: 8 INJECTIONS IN 21 MONTHS
     Route: 050
     Dates: start: 20091209

REACTIONS (3)
  - DEATH [None]
  - UNEVALUABLE EVENT [None]
  - CONVULSION [None]
